FAERS Safety Report 9967775 (Version 1)
Quarter: 2014Q1

REPORT INFORMATION
  Report Type: Report from Study
  Country: US (occurrence: US)
  Receive Date: 20140306
  Receipt Date: 20140306
  Transmission Date: 20141002
  Serious: No
  Sender: FDA-Public Use
  Company Number: US-ABBVIE-13P-163-1141394-00

PATIENT
  Age: 55 Year
  Sex: Male
  Weight: 102.15 kg

DRUGS (5)
  1. HUMIRA [Suspect]
     Indication: PSORIATIC ARTHROPATHY
     Dates: start: 2010, end: 20130809
  2. METHOTREXATE [Concomitant]
     Indication: PSORIATIC ARTHROPATHY
  3. CLOBETASOL [Concomitant]
     Indication: PSORIASIS
  4. METFORMIN [Concomitant]
     Indication: DIABETES MELLITUS
  5. ALPRAZOLAM [Concomitant]
     Indication: PANIC ATTACK

REACTIONS (6)
  - Blister [Not Recovered/Not Resolved]
  - Pain in extremity [Not Recovered/Not Resolved]
  - Wound infection [Unknown]
  - Injury [Recovered/Resolved]
  - Blister rupture [Recovered/Resolved]
  - Purulent discharge [Unknown]
